FAERS Safety Report 4758081-1 (Version None)
Quarter: 2005Q3

REPORT INFORMATION
  Report Type: 
  Country: None (occurrence: None)
  Receive Date: 20050829
  Receipt Date: 20050818
  Transmission Date: 20060218
  Serious: Yes (Other)
  Sender: FDA-Public Use
  Company Number: 2005118100

PATIENT
  Age: 90 Year
  Sex: Female

DRUGS (4)
  1. LYRICA [Suspect]
     Indication: NEURALGIA
     Dosage: 150 MG (75 MG, 2 IN 1 D), ORAL
     Route: 048
     Dates: start: 20050617, end: 20050618
  2. CO-AMOXICLAV (AMOXICILLIN TRIHYDRATE, CLAVULANATE POTASSIUM) [Concomitant]
  3. FUCITHALMIC (FUSIDIC ACID) [Concomitant]
  4. LACTULOSE [Concomitant]

REACTIONS (6)
  - BEDRIDDEN [None]
  - DIZZINESS [None]
  - HEADACHE [None]
  - MALAISE [None]
  - SOMNOLENCE [None]
  - VERTIGO [None]
